FAERS Safety Report 4993809-7 (Version None)
Quarter: 2006Q2

REPORT INFORMATION
  Report Type: 
  Country: None (occurrence: None)
  Receive Date: 20060503
  Receipt Date: 20060420
  Transmission Date: 20061013
  Serious: Yes (Death, Other)
  Sender: FDA-Public Use
  Company Number: CA200601002265

PATIENT
  Age: 82 Year
  Sex: Female

DRUGS (3)
  1. ZYPREXA [Suspect]
     Dosage: SEE  IMAGE, ORAL
     Route: 048
     Dates: start: 20051121, end: 20051230
  2. ZYPREXA [Suspect]
     Dosage: SEE  IMAGE, ORAL
     Route: 048
     Dates: start: 20051230, end: 20060118
  3. HYDROCHLOROTHIAZIDE [Concomitant]

REACTIONS (5)
  - APHAGIA [None]
  - CEREBROVASCULAR ACCIDENT [None]
  - DEHYDRATION [None]
  - DYSPHAGIA [None]
  - SPEECH DISORDER [None]
